FAERS Safety Report 7273297-0 (Version None)
Quarter: 2011Q1

REPORT INFORMATION
  Report Type: 
  Country: None (occurrence: None)
  Receive Date: 20110203
  Receipt Date: 20101112
  Transmission Date: 20110831
  Serious: No
  Sender: FDA-Public Use
  Company Number: US-ABBOTT-10P-163-0685877-00

PATIENT
  Sex: Female
  Weight: 56.75 kg

DRUGS (8)
  1. SYNTHROID [Suspect]
     Indication: AUTOIMMUNE THYROIDITIS
     Dates: start: 20060101
  2. SYNTHROID [Suspect]
     Dates: start: 19940101, end: 19950101
  3. SYNTHROID [Suspect]
  4. CELEBREX [Concomitant]
     Indication: ARTHRITIS
  5. NEURONTIN [Concomitant]
     Indication: LYME DISEASE
  6. EFFEXOR XR [Concomitant]
     Indication: LYME DISEASE
  7. CELEBREX [Concomitant]
     Indication: LYME DISEASE
  8. LIBREM [Concomitant]
     Indication: MUSCLE RELAXANT THERAPY

REACTIONS (4)
  - BALANCE DISORDER [None]
  - DIZZINESS [None]
  - VOMITING [None]
  - VERTIGO [None]
